FAERS Safety Report 25811775 (Version 2)
Quarter: 2025Q4

REPORT INFORMATION
  Report Type: Spontaneous
  Country: GB (occurrence: GB)
  Receive Date: 20250917
  Receipt Date: 20251009
  Transmission Date: 20260117
  Serious: Yes (Hospitalization)
  Sender: TEVA
  Company Number: GB-TEVA-VS-3371479

PATIENT
  Sex: Female

DRUGS (7)
  1. RAMIPRIL [Suspect]
     Active Substance: RAMIPRIL
     Indication: Hypertension
     Route: 065
  2. LENALIDOMIDE [Concomitant]
     Active Substance: LENALIDOMIDE
     Indication: Plasma cell myeloma
     Dosage: REVLIMID
     Route: 065
  3. METARAMINOL [Concomitant]
     Active Substance: METARAMINOL
     Indication: Hypotension
     Route: 065
  4. DEXAMETHASONE [Suspect]
     Active Substance: DEXAMETHASONE
     Indication: Plasma cell myeloma
     Route: 065
  5. DOXAZOSIN [Concomitant]
     Active Substance: DOXAZOSIN MESYLATE
     Indication: Hypertension
     Route: 065
  6. Calcium chloride dihydrate Potassium chloride Sodium chloride Sodiu... [Concomitant]
     Indication: Hypotension
     Dosage: RINGER^S-LACTATE [HARTMANN^S SOLUTION]
     Route: 042
  7. Calcium chloride dihydrate Potassium chloride Sodium chloride Sodiu... [Concomitant]
     Indication: Hypotension
     Route: 042

REACTIONS (2)
  - Hyponatraemia [Recovered/Resolved]
  - Adrenal insufficiency [Recovering/Resolving]
